FAERS Safety Report 18902374 (Version 1)
Quarter: 2021Q1

REPORT INFORMATION
  Report Type: Spontaneous
  Country: AU (occurrence: AU)
  Receive Date: 20210217
  Receipt Date: 20210217
  Transmission Date: 20210420
  Serious: Yes (Other)
  Sender: FDA-Public Use
  Company Number: AU-TEVA-2021-AU-1880278

PATIENT
  Age: 79 Year
  Sex: Female

DRUGS (7)
  1. TEVETEN [Suspect]
     Active Substance: EPROSARTAN MESYLATE
     Route: 065
  2. CALTRATE [Suspect]
     Active Substance: CALCIUM CARBONATE
     Route: 065
  3. LITHICARB [Suspect]
     Active Substance: LITHIUM CARBONATE
     Route: 065
  4. RISPERIDONE. [Concomitant]
     Active Substance: RISPERIDONE
     Route: 065
  5. ACTONEL [Suspect]
     Active Substance: RISEDRONATE SODIUM
     Route: 065
  6. TEVETEN PLUS [Suspect]
     Active Substance: EPROSARTAN\HYDROCHLOROTHIAZIDE
     Route: 065
  7. NORVASC [Concomitant]
     Active Substance: AMLODIPINE BESYLATE
     Route: 065

REACTIONS (4)
  - Clostridium difficile colitis [Unknown]
  - Toxicity to various agents [Unknown]
  - Hypercalcaemia [Unknown]
  - Cerebrovascular accident [Unknown]
